FAERS Safety Report 14935000 (Version 1)
Quarter: 2018Q2

REPORT INFORMATION
  Report Type: Spontaneous
  Country: JP (occurrence: JP)
  Receive Date: 20180524
  Receipt Date: 20180524
  Transmission Date: 20180711
  Serious: Yes (Hospitalization, Other)
  Sender: FDA-Public Use
  Company Number: JP-ALLERGAN-1827435US

PATIENT
  Age: 76 Year

DRUGS (2)
  1. MILNACIPRAN - BP [Suspect]
     Active Substance: MILNACIPRAN
     Indication: PRODUCT USED FOR UNKNOWN INDICATION
     Dosage: 25 MG, BID
     Route: 048
  2. MILNACIPRAN - BP [Suspect]
     Active Substance: MILNACIPRAN
     Dosage: 60 MG, UNK
     Route: 048

REACTIONS (1)
  - Femur fracture [Unknown]
